FAERS Safety Report 9391447 (Version 1)
Quarter: 2013Q3

REPORT INFORMATION
  Report Type: Spontaneous
  Country: US (occurrence: US)
  Receive Date: 20130709
  Receipt Date: 20130709
  Transmission Date: 20140515
  Serious: No
  Sender: FDA-Public Use
  Company Number: US-009507513-1307USA004143

PATIENT
  Sex: Female

DRUGS (1)
  1. DULERA [Suspect]
     Dosage: 2 DF, BID (2 PUFFS TWICE DAILY)
     Route: 055
     Dates: start: 20130621

REACTIONS (1)
  - Muscle spasms [Recovering/Resolving]
